FAERS Safety Report 20178239 (Version 3)
Quarter: 2021Q4

REPORT INFORMATION
  Report Type: Spontaneous
  Country: AR (occurrence: AR)
  Receive Date: 20211213
  Receipt Date: 20211220
  Transmission Date: 20220303
  Serious: Yes (Death, Hospitalization, Other)
  Sender: FDA-Public Use
  Company Number: AR-BIOMARINAP-AR-2021-140119

PATIENT
  Age: 28 Year
  Sex: Female

DRUGS (1)
  1. ALDURAZYME [Suspect]
     Active Substance: LARONIDASE
     Indication: Mucopolysaccharidosis I
     Dosage: 20.3 MILLIGRAM, QW
     Route: 041
     Dates: start: 20211125

REACTIONS (15)
  - Cardiac failure [Fatal]
  - Ill-defined disorder [Unknown]
  - Peripheral swelling [Unknown]
  - Oxygen saturation decreased [Not Recovered/Not Resolved]
  - Agitation [Not Recovered/Not Resolved]
  - Swelling [Unknown]
  - Fluid retention [Unknown]
  - Weight increased [Unknown]
  - Hernia [Unknown]
  - Generalised oedema [Unknown]
  - Constipation [Unknown]
  - Fatigue [Not Recovered/Not Resolved]
  - Oxygen consumption increased [Unknown]
  - Abdominal pain [Unknown]
  - Hypotension [Unknown]

NARRATIVE: CASE EVENT DATE: 20210101
